FAERS Safety Report 7399723-4 (Version None)
Quarter: 2011Q2

REPORT INFORMATION
  Report Type: 
  Country: None (occurrence: None)
  Receive Date: 20110407
  Receipt Date: 20110323
  Transmission Date: 20111010
  Serious: Yes (Hospitalization)
  Sender: FDA-Public Use
  Company Number: GR-CELGENEUS-066-C5013-10032396

PATIENT
  Sex: Female
  Weight: 70 kg

DRUGS (11)
  1. LENALIDOMIDE [Suspect]
     Dosage: 20 MILLIGRAM
     Route: 048
     Dates: start: 20100315, end: 20100324
  2. VALACICLOVIR [Concomitant]
     Indication: INFECTION PROPHYLAXIS
     Dosage: 500 MILLIGRAM
     Route: 048
     Dates: start: 20090601
  3. DEXAMETHASONE [Suspect]
     Indication: PERIORBITAL OEDEMA
     Dosage: 40 MILLIGRAM
     Route: 048
     Dates: start: 20100315, end: 20100324
  4. LENALIDOMIDE [Suspect]
     Indication: MULTIPLE MYELOMA
     Dosage: 20 MILLIGRAM
     Route: 048
     Dates: start: 20090602
  5. DEXAMETHASONE [Suspect]
     Indication: MULTIPLE MYELOMA
     Dosage: 40 MILLIGRAM
     Route: 048
     Dates: start: 20090630
  6. DEXAMETHASONE [Suspect]
     Route: 048
     Dates: start: 20100408
  7. MIRAPEXIN [Concomitant]
     Indication: PARKINSON'S DISEASE
     Route: 048
     Dates: start: 19990101
  8. LEVODOPA AND BENSERAZIDE [Concomitant]
     Indication: PARKINSON'S DISEASE
     Dosage: 750 MILLIGRAM
     Route: 048
     Dates: start: 19990101
  9. ASPIRIN [Concomitant]
     Indication: THROMBOSIS PROPHYLAXIS
     Dosage: 100 MILLIGRAM
     Route: 048
     Dates: start: 20090601
  10. LENALIDOMIDE [Suspect]
     Dosage: 20 MILLIGRAM
     Route: 048
     Dates: start: 20100528
  11. DEXAMETHASONE [Suspect]
     Route: 048
     Dates: start: 20100528

REACTIONS (3)
  - MENINGIOMA BENIGN [None]
  - APHASIA [None]
  - PYRAMIDAL TRACT SYNDROME [None]
